FAERS Safety Report 7881545-9 (Version None)
Quarter: 2011Q4

REPORT INFORMATION
  Report Type: 
  Country: None (occurrence: None)
  Receive Date: 20111101
  Receipt Date: 20110531
  Transmission Date: 20120403
  Serious: No
  Sender: FDA-Public Use
  Company Number: US-AMGEN-USASP2011028015

PATIENT
  Age: 58 Year
  Sex: Female

DRUGS (3)
  1. ARAVA [Concomitant]
     Dosage: UNK
  2. PLAQUENIL [Concomitant]
     Dosage: UNK
  3. ENBREL [Suspect]
     Indication: RHEUMATOID ARTHRITIS
     Dosage: 50 MG, QWK
     Dates: start: 20090524

REACTIONS (5)
  - SWELLING [None]
  - RHEUMATOID ARTHRITIS [None]
  - PAIN [None]
  - INJECTION SITE PAIN [None]
  - INJECTION SITE REACTION [None]
